FAERS Safety Report 13798072 (Version 1)
Quarter: 2017Q3

REPORT INFORMATION
  Report Type: Spontaneous
  Country: US (occurrence: US)
  Receive Date: 20170727
  Receipt Date: 20170727
  Transmission Date: 20171127
  Serious: No
  Sender: FDA-Public Use
  Company Number: US-PFIZER INC-2017324241

PATIENT
  Age: 70 Year
  Sex: Male
  Weight: 76.66 kg

DRUGS (2)
  1. LYRICA [Suspect]
     Active Substance: PREGABALIN
  2. LISINOPRIL. [Concomitant]
     Active Substance: LISINOPRIL
     Indication: HYPERTENSION

REACTIONS (1)
  - Withdrawal syndrome [Not Recovered/Not Resolved]
